FAERS Safety Report 8939675 (Version 1)
Quarter: 2012Q4

REPORT INFORMATION
  Report Type: 
  Country: US (occurrence: US)
  Receive Date: 20121203
  Receipt Date: 20121203
  Transmission Date: 20130627
  Serious: No
  Sender: FDA-Public Use
  Company Number: 2005BI017422

PATIENT
  Age: 53 Year
  Sex: Female
  Weight: 62 kg

DRUGS (2)
  1. AVONEX [Suspect]
     Indication: MULTIPLE SCLEROSIS
     Route: 030
     Dates: end: 200308
  2. AVONEX [Suspect]
     Indication: MULTIPLE SCLEROSIS
     Route: 030
     Dates: end: 20060808

REACTIONS (4)
  - Intraocular pressure increased [Recovered/Resolved]
  - Corneal transplant [Recovered/Resolved]
  - Glaucoma [Recovered/Resolved]
  - Cataract operation [Recovered/Resolved]
